FAERS Safety Report 8495842-X (Version None)
Quarter: 2012Q3

REPORT INFORMATION
  Report Type: 
  Country: None (occurrence: None)
  Receive Date: 20120709
  Receipt Date: 20120703
  Transmission Date: 20120928
  Serious: Yes (Other)
  Sender: FDA-Public Use
  Company Number: PHHY2012BR049061

PATIENT
  Sex: Female

DRUGS (3)
  1. AMLODOPINE BESYLATE AND VALSARTAN [Suspect]
     Indication: HYPERTENSION
     Dosage: 1 DF, DAILY (320 MG VALS AND 5 MG AMLO)
     Route: 048
  2. PHOLIAMAGRA [Concomitant]
  3. AMLODOPINE BESYLATE AND VALSARTAN [Suspect]
     Dosage: 1 DF, 1 DF, DAILY (320 MG VALS AND 5 MG AMLO)
     Dates: start: 20120604

REACTIONS (7)
  - MALAISE [None]
  - URINARY RETENTION [None]
  - NAUSEA [None]
  - CEREBROVASCULAR ACCIDENT [None]
  - BLOOD PRESSURE INCREASED [None]
  - VOMITING [None]
  - HEADACHE [None]
